FAERS Safety Report 18557266 (Version 1)
Quarter: 2020Q4

REPORT INFORMATION
  Report Type: Spontaneous
  Country: AU (occurrence: AU)
  Receive Date: 20201129
  Receipt Date: 20201129
  Transmission Date: 20210114
  Serious: Yes (Other)
  Sender: FDA-Public Use
  Company Number: AU-BAXTER-2020BAX023766

PATIENT
  Age: 36 Year
  Sex: Female

DRUGS (2)
  1. SODIUM CHLORIDE (VIAFLO) 1000ML [Suspect]
     Active Substance: SODIUM CHLORIDE
     Indication: MEDICATION DILUTION
     Route: 042
     Dates: start: 20201116, end: 20201116
  2. PACLITAXEL. [Suspect]
     Active Substance: PACLITAXEL
     Indication: SQUAMOUS CELL CARCINOMA OF THE CERVIX
     Route: 042
     Dates: start: 20201116, end: 20201116

REACTIONS (4)
  - Abdominal pain upper [Recovered/Resolved]
  - Unresponsive to stimuli [Recovered/Resolved]
  - Back pain [Recovered/Resolved]
  - Feeling hot [Recovered/Resolved]

NARRATIVE: CASE EVENT DATE: 20201116
